FAERS Safety Report 8384400-3 (Version None)
Quarter: 2012Q2

REPORT INFORMATION
  Report Type: 
  Country: None (occurrence: None)
  Receive Date: 20120524
  Receipt Date: 20120515
  Transmission Date: 20120825
  Serious: Yes (Death, Hospitalization)
  Sender: FDA-Public Use
  Company Number: US-GLAXOSMITHKLINE-A0929974A

PATIENT
  Age: 71 Year
  Sex: Male

DRUGS (9)
  1. NEURONTIN [Concomitant]
  2. CARDIZEM [Concomitant]
  3. AVANDIA [Suspect]
     Indication: DIABETES MELLITUS
     Dosage: 8MG PER DAY
     Route: 048
     Dates: start: 19990601, end: 20070401
  4. ZOCOR [Concomitant]
  5. INSULIN [Concomitant]
  6. COMBIVENT [Concomitant]
  7. EPOGEN [Concomitant]
  8. PAXIL [Concomitant]
  9. SYNTHROID [Concomitant]

REACTIONS (5)
  - HYPOXIC-ISCHAEMIC ENCEPHALOPATHY [None]
  - ASPIRATION [None]
  - CEREBROVASCULAR ACCIDENT [None]
  - CARDIAC FAILURE CONGESTIVE [None]
  - PNEUMONIA ASPIRATION [None]
